FAERS Safety Report 24335684 (Version 1)
Quarter: 2024Q3

REPORT INFORMATION
  Report Type: Spontaneous
  Country: US (occurrence: US)
  Receive Date: 20240919
  Receipt Date: 20240919
  Transmission Date: 20241017
  Serious: No
  Sender: GLENMARK
  Company Number: US-GLENMARK PHARMACEUTICALS-2024GMK091513

PATIENT

DRUGS (1)
  1. POTASSIUM CHLORIDE [Suspect]
     Active Substance: POTASSIUM CHLORIDE
     Indication: Renal disorder
     Dosage: UNK
     Route: 065

REACTIONS (2)
  - Drug effective for unapproved indication [Unknown]
  - Product availability issue [Unknown]
